FAERS Safety Report 17950141 (Version 1)
Quarter: 2020Q2

REPORT INFORMATION
  Report Type: Spontaneous
  Country: GB (occurrence: GB)
  Receive Date: 20200626
  Receipt Date: 20200626
  Transmission Date: 20200714
  Serious: Yes (Other)
  Sender: FDA-Public Use
  Company Number: NVSC2020GB109426

PATIENT
  Sex: Male

DRUGS (2)
  1. SOMATROPIN. [Suspect]
     Active Substance: SOMATROPIN
     Indication: GROWTH HORMONE DEFICIENCY
     Dosage: 1.4 MG, QD
     Route: 065
  2. SOMATROPIN. [Suspect]
     Active Substance: SOMATROPIN
     Dosage: 1.0 MG, DAILY
     Route: 065

REACTIONS (10)
  - Fatigue [Unknown]
  - Injection site bruising [Unknown]
  - Product physical issue [Unknown]
  - Liver injury [Unknown]
  - Headache [Unknown]
  - Product dose omission [Unknown]
  - Pain [Unknown]
  - Headache [Recovered/Resolved]
  - Product administration error [Unknown]
  - Injection site pain [Unknown]

NARRATIVE: CASE EVENT DATE: 202004
